FAERS Safety Report 15688590 (Version 3)
Quarter: 2020Q2

REPORT INFORMATION
  Report Type: Spontaneous
  Country: JP (occurrence: JP)
  Receive Date: 20181205
  Receipt Date: 20200424
  Transmission Date: 20200713
  Serious: Yes (Hospitalization)
  Sender: FDA-Public Use
  Company Number: JP-SUN PHARMACEUTICAL INDUSTRIES LTD-2018R1-192429

PATIENT
  Age: 30 Year
  Sex: Female
  Weight: 52 kg

DRUGS (6)
  1. APRESOLINE HYDROCHLORIDE [Suspect]
     Active Substance: HYDRALAZINE HYDROCHLORIDE
     Indication: HYPERTENSION
     Dosage: UNK
     Route: 048
  2. METHYLDOPA. [Suspect]
     Active Substance: METHYLDOPA
     Dosage: 1000 MILLIGRAM, DAILY
     Route: 048
  3. METHYLDOPA. [Suspect]
     Active Substance: METHYLDOPA
     Indication: HYPERTENSION
     Dosage: 500 MILLIGRAM, DAILY
     Route: 048
  4. NIFEDIPINE. [Suspect]
     Active Substance: NIFEDIPINE
     Indication: HYPERTENSION
     Dosage: UNK (20 MG)
     Route: 048
  5. METHYLDOPA. [Suspect]
     Active Substance: METHYLDOPA
     Dosage: 750 MILLIGRAM, DAILY
     Route: 048
  6. NICARDIPINE [Suspect]
     Active Substance: NICARDIPINE
     Indication: HYPERTENSION
     Dosage: UNK (1MG/H)
     Route: 065

REACTIONS (6)
  - Low birth weight baby [Unknown]
  - Foetal growth restriction [Unknown]
  - Premature delivery [Unknown]
  - Renal disorder in pregnancy [Unknown]
  - Gestational hypertension [Unknown]
  - Exposure during pregnancy [Unknown]
